FAERS Safety Report 13166786 (Version 7)
Quarter: 2017Q4

REPORT INFORMATION
  Report Type: Spontaneous
  Country: US (occurrence: US)
  Receive Date: 20170131
  Receipt Date: 20171124
  Transmission Date: 20180320
  Serious: Yes (Hospitalization, Other)
  Sender: FDA-Public Use
  Company Number: US-TAKEDA-2017MPI000669

PATIENT
  Sex: Female
  Weight: 84.35 kg

DRUGS (1)
  1. NINLARO [Suspect]
     Active Substance: IXAZOMIB CITRATE
     Indication: PLASMA CELL MYELOMA
     Dosage: 5 MG, UNK
     Route: 048
     Dates: start: 20161213

REACTIONS (9)
  - Arthritis [Unknown]
  - Cardiac failure congestive [Unknown]
  - Swelling [Unknown]
  - Back pain [Unknown]
  - Cystitis [Unknown]
  - Muscle strain [Unknown]
  - Drug ineffective [Unknown]
  - Confusional state [Unknown]
  - Memory impairment [Unknown]
